FAERS Safety Report 5627708-4 (Version None)
Quarter: 2008Q1

REPORT INFORMATION
  Report Type: 
  Country: None (occurrence: None)
  Receive Date: 20080214
  Receipt Date: 20080214
  Transmission Date: 20080703
  Serious: Yes (Other)
  Sender: FDA-Public Use
  Company Number: None

PATIENT
  Age: 15 Month
  Sex: Female
  Weight: 10.5235 kg

DRUGS (1)
  1. TAMIFLU [Suspect]
     Indication: INFLUENZA SEROLOGY POSITIVE
     Dosage: 60MG/5ML 1/2 TSP BID PO
     Route: 048
     Dates: start: 20080208, end: 20080211

REACTIONS (3)
  - CONVULSION [None]
  - DYSTONIA [None]
  - PSYCHOTIC DISORDER [None]
